FAERS Safety Report 6899660-5 (Version None)
Quarter: 2010Q3

REPORT INFORMATION
  Report Type: 
  Country: None (occurrence: None)
  Receive Date: 20100708
  Receipt Date: 20100301
  Transmission Date: 20110219
  Serious: Yes (Other)
  Sender: FDA-Public Use
  Company Number: 2010026969

PATIENT
  Age: 47 Year
  Sex: Female
  Weight: 100 kg

DRUGS (3)
  1. CHANTIX [Suspect]
     Indication: SMOKING CESSATION THERAPY
     Dosage: 0.5 MG, DAILY, ORAL
     Route: 048
     Dates: start: 20090901, end: 20090901
  2. AMITRIPTYLINE HYDROCHLORIDE [Concomitant]
  3. KLONOPIN [Concomitant]

REACTIONS (3)
  - CRYING [None]
  - FATIGUE [None]
  - PANIC REACTION [None]
